FAERS Safety Report 9399532 (Version 1)
Quarter: 2013Q3

REPORT INFORMATION
  Report Type: Spontaneous
  Country: TR (occurrence: None)
  Receive Date: 20130710
  Receipt Date: 20130710
  Transmission Date: 20140515
  Serious: Yes (Hospitalization)
  Sender: FDA-Public Use
  Company Number: FK201302336

PATIENT
  Age: 29 Year
  Sex: Male

DRUGS (2)
  1. AMPICILLIN AND SULBACTAM [Suspect]
     Indication: TONSILLITIS
     Route: 030
  2. AMOXICILLIN + CLAVULANIC ACID [Suspect]
     Indication: TONSILLITIS
     Route: 048

REACTIONS (2)
  - Kounis syndrome [None]
  - Skin test positive [None]
